FAERS Safety Report 14435807 (Version 1)
Quarter: 2018Q1

REPORT INFORMATION
  Report Type: Spontaneous
  Country: US (occurrence: US)
  Receive Date: 20180125
  Receipt Date: 20180125
  Transmission Date: 20180509
  Serious: Yes (Hospitalization)
  Sender: FDA-Public Use
  Company Number: US-LUPIN PHARMACEUTICALS INC.-2018-00209

PATIENT
  Age: 46 Year
  Sex: Female

DRUGS (2)
  1. OXYCODONE [Suspect]
     Active Substance: OXYCODONE
     Indication: PRODUCT USED FOR UNKNOWN INDICATION
     Dosage: UNK
     Route: 065
  2. LOPERAMIDE [Suspect]
     Active Substance: LOPERAMIDE
     Indication: WITHDRAWAL SYNDROME
     Dosage: 30 TO 60 TABLETS AT A TIME AT LEAST TWICE A DAY
     Route: 065

REACTIONS (6)
  - Overdose [Unknown]
  - Cardiac arrest [Unknown]
  - Torsade de pointes [Unknown]
  - Ventricular arrhythmia [Unknown]
  - Electrocardiogram QT prolonged [Unknown]
  - Drug abuse [Unknown]
